FAERS Safety Report 9648491 (Version 1)
Quarter: 2013Q4

REPORT INFORMATION
  Report Type: Report from Study
  Country: CA (occurrence: CA)
  Receive Date: 20131028
  Receipt Date: 20131028
  Transmission Date: 20140711
  Serious: Yes (Other)
  Sender: FDA-Public Use
  Company Number: CA-UCBSA-101347

PATIENT
  Age: 46 Year
  Sex: Female
  Weight: 93 kg

DRUGS (15)
  1. CIMZIA [Suspect]
     Indication: RHEUMATOID ARTHRITIS
     Dosage: 400 MG ONCE IN 2 WEEKS X 3
     Route: 058
     Dates: start: 20130105, end: 20130202
  2. CIMZIA [Suspect]
     Indication: RHEUMATOID ARTHRITIS
     Route: 058
     Dates: start: 20130216, end: 20131019
  3. ARAVA [Concomitant]
     Indication: RHEUMATOID ARTHRITIS
     Route: 048
  4. PLAQUENIL [Concomitant]
     Indication: RHEUMATOID ARTHRITIS
     Route: 048
  5. HYDROCHLOROTHIAZIDE [Concomitant]
     Indication: HYPERTENSION
     Route: 048
  6. COVERSYL [Concomitant]
     Indication: HYPERTENSION
     Route: 048
  7. IBUPROFEN [Concomitant]
  8. VAGIFEM [Concomitant]
  9. ESTROGEL [Concomitant]
     Dosage: 2 SQUIRTS DAILY
  10. PROMETHIUM [Concomitant]
     Dosage: 100 MG DAILY
  11. ANDROGEN [Concomitant]
     Dosage: 1/2 SQUIRT DAILY
  12. CALCIUM [Concomitant]
     Dosage: UNKNOWN DOSE
  13. MULTIVITE [Concomitant]
     Dosage: UNKNOWN DOSE
  14. FOLIC ACID [Concomitant]
     Dosage: UNKNOWN DOSE
  15. B12 [Concomitant]
     Dosage: UNKNOWN DOSE

REACTIONS (2)
  - Blood pressure increased [Not Recovered/Not Resolved]
  - Sinus headache [Not Recovered/Not Resolved]
